FAERS Safety Report 9407538 (Version 1)
Quarter: 2013Q3

REPORT INFORMATION
  Report Type: Spontaneous
  Country: LT (occurrence: LT)
  Receive Date: 20130718
  Receipt Date: 20130718
  Transmission Date: 20140515
  Serious: Yes (Life-Threatening, Hospitalization)
  Sender: FDA-Public Use
  Company Number: LT-TEVA-419003ISR

PATIENT
  Age: 28 Year
  Sex: Female

DRUGS (2)
  1. FINLEPSIN 200 MG [Suspect]
     Indication: INTENTIONAL OVERDOSE
     Route: 048
     Dates: start: 20130613
  2. DIAZEPAM - TABLET [Suspect]
     Indication: INTENTIONAL OVERDOSE
     Route: 048
     Dates: start: 20130613

REACTIONS (5)
  - Suicide attempt [Recovering/Resolving]
  - Somnolence [Recovering/Resolving]
  - Disorientation [Recovering/Resolving]
  - Drug abuse [Recovering/Resolving]
  - Intentional overdose [None]
